FAERS Safety Report 8664910 (Version 3)
Quarter: 2012Q4

REPORT INFORMATION
  Report Type: 
  Country: FR (occurrence: FR)
  Receive Date: 20120713
  Receipt Date: 20121128
  Transmission Date: 20130627
  Serious: Yes (Hospitalization, Other)
  Sender: FDA-Public Use
  Company Number: FR-PFIZER INC-2012161966

PATIENT
  Age: 53 Year
  Sex: Male

DRUGS (4)
  1. DALACINE [Suspect]
     Indication: INFECTION
     Dosage: UNK
     Route: 042
     Dates: start: 20120511, end: 20120524
  2. PIPERACILLIN/TAZOBACTAM STRAGEN [Suspect]
     Indication: INFECTION
     Dosage: UNK
     Route: 042
     Dates: start: 20120511, end: 20120605
  3. VANCOMYCINE MYLAN [Concomitant]
     Indication: INFECTION
     Dosage: UNK
     Route: 042
     Dates: start: 20120606, end: 20120610
  4. AZACTAM [Concomitant]
     Indication: INFECTION
     Dosage: UNK
     Route: 042
     Dates: start: 20120606, end: 20120610

REACTIONS (3)
  - Drug reaction with eosinophilia and systemic symptoms [Recovered/Resolved with Sequelae]
  - Tubulointerstitial nephritis [Recovered/Resolved with Sequelae]
  - Renal failure chronic [Unknown]
